FAERS Safety Report 25612302 (Version 1)
Quarter: 2025Q3

REPORT INFORMATION
  Report Type: Spontaneous
  Country: US (occurrence: None)
  Receive Date: 20250725
  Receipt Date: 20250725
  Transmission Date: 20251021
  Serious: No
  Sender: FDA-CTU
  Company Number: None

PATIENT
  Age: 67 Year
  Sex: Male
  Weight: 72 kg

DRUGS (12)
  1. CLOPIDOGREL [Suspect]
     Active Substance: CLOPIDOGREL BISULFATE
     Indication: Carotid artery stenosis
     Dosage: 1 TABLET DAILY ORAL
     Route: 048
     Dates: start: 20250401, end: 20250630
  2. Losartan 100 mg/day [Concomitant]
  3. Tiadylt (diltiazem) ER 180 mg/day [Concomitant]
  4. Atorvastatin 80 mg/day [Concomitant]
  5. Bupropion XL 150/day [Concomitant]
  6. Valacyclovir 500 mg 2x/day [Concomitant]
  7. Famotidine 20 mg 2x/day [Concomitant]
  8. Brilinta 90 MG 2x/day (temporary) [Concomitant]
  9. aspirin 81 mg/day [Concomitant]
  10. liquid multivitamin [Concomitant]
  11. liquid B-12 [Concomitant]
  12. Vit E 800/day [Concomitant]

REACTIONS (1)
  - Ageusia [None]

NARRATIVE: CASE EVENT DATE: 20250401
